FAERS Safety Report 16410272 (Version 1)
Quarter: 2019Q2

REPORT INFORMATION
  Report Type: Report from Study
  Country: CN (occurrence: CN)
  Receive Date: 20190610
  Receipt Date: 20190610
  Transmission Date: 20190711
  Serious: Yes (Other)
  Sender: FDA-Public Use
  Company Number: CN-JNJFOC-20190538897

PATIENT

DRUGS (1)
  1. RISPERIDONE. [Suspect]
     Active Substance: RISPERIDONE
     Indication: EPILEPSY
     Route: 065

REACTIONS (6)
  - Product use in unapproved indication [Unknown]
  - Hepatic function abnormal [Unknown]
  - Drug eruption [Unknown]
  - Renal impairment [Unknown]
  - Pyrexia [Unknown]
  - Off label use [Unknown]
